FAERS Safety Report 10052364 (Version 2)
Quarter: 2014Q2

REPORT INFORMATION
  Report Type: Spontaneous
  Country: US (occurrence: US)
  Receive Date: 20140402
  Receipt Date: 20140409
  Transmission Date: 20141212
  Serious: No
  Sender: FDA-Public Use
  Company Number: US-009507513-1403USA014691

PATIENT
  Sex: 0
  Weight: 101.59 kg

DRUGS (2)
  1. NEXPLANON [Suspect]
     Dosage: 68 MG, 1 ROD/THREE YEARS
     Route: 059
     Dates: start: 20140325, end: 20140325
  2. NEXPLANON [Suspect]
     Dosage: UNK
     Dates: start: 20140402

REACTIONS (2)
  - Device expulsion [Unknown]
  - Weight abnormal [Unknown]
